FAERS Safety Report 13179490 (Version 4)
Quarter: 2017Q4

REPORT INFORMATION
  Report Type: Report from Study
  Country: US (occurrence: US)
  Receive Date: 20170202
  Receipt Date: 20171215
  Transmission Date: 20180320
  Serious: No
  Sender: FDA-Public Use
  Company Number: PHEH2017US002471

PATIENT
  Sex: Female

DRUGS (1)
  1. COSENTYX [Suspect]
     Active Substance: SECUKINUMAB
     Indication: PSORIASIS
     Dosage: UNK
     Route: 058

REACTIONS (6)
  - Arthritis [Unknown]
  - Psoriasis [Unknown]
  - Pain [Unknown]
  - Feeling abnormal [Unknown]
  - Rash [Unknown]
  - Drug ineffective [Unknown]
